FAERS Safety Report 4737814-4 (Version None)
Quarter: 2005Q3

REPORT INFORMATION
  Report Type: 
  Country: None (occurrence: None)
  Receive Date: 20050805
  Receipt Date: 20050727
  Transmission Date: 20060218
  Serious: Yes (Hospitalization)
  Sender: FDA-Public Use
  Company Number: B0388242A

PATIENT
  Age: 36 Year
  Sex: Female

DRUGS (7)
  1. AZATHIOPRINE [Suspect]
     Dosage: 100 MG/ PER DAY
     Route: 048
  2. SEPTRA [Suspect]
  3. PREDNISOLONE             (GENERIC) [Suspect]
     Dosage: 35 MG/ PER DAY
  4. ZINACEF [Suspect]
     Dosage: 35 MG PER DAY
  5. CALCIUM SALT  (CALCIUM SALT) [Suspect]
     Dosage: 500 MG/ PER DAY
  6. DINOPROSTONE (DINOPROSTONE) [Suspect]
  7. CYCLOSPORINE [Suspect]

REACTIONS (8)
  - BLOOD URIC ACID INCREASED [None]
  - CAESAREAN SECTION [None]
  - CHOLESTASIS OF PREGNANCY [None]
  - DRUG EXPOSURE DURING PREGNANCY [None]
  - INDUCED LABOUR [None]
  - PREGNANCY [None]
  - PRURITUS GENERALISED [None]
  - VAGINAL CANDIDIASIS [None]
